FAERS Safety Report 7419999-4 (Version None)
Quarter: 2011Q2

REPORT INFORMATION
  Report Type: 
  Country: None (occurrence: None)
  Receive Date: 20110418
  Receipt Date: 20110408
  Transmission Date: 20111010
  Serious: Yes (Hospitalization)
  Sender: FDA-Public Use
  Company Number: US-BIOGENIDEC-2011BI002292

PATIENT
  Age: 46 Year
  Sex: Female

DRUGS (4)
  1. TYSABRI [Suspect]
     Indication: MULTIPLE SCLEROSIS
     Route: 042
     Dates: start: 20100916, end: 20101111
  2. AVONEX [Concomitant]
     Indication: MULTIPLE SCLEROSIS
     Route: 030
     Dates: start: 20090910, end: 20100701
  3. AVONEX [Concomitant]
     Route: 030
     Dates: start: 20040827
  4. AVONEX [Concomitant]
     Route: 030
     Dates: start: 20110107

REACTIONS (3)
  - MULTIPLE SCLEROSIS RELAPSE [None]
  - BLADDER DYSFUNCTION [None]
  - RENAL IMPAIRMENT [None]
